FAERS Safety Report 8964764 (Version 1)
Quarter: 2012Q4

REPORT INFORMATION
  Report Type: 
  Country: US (occurrence: US)
  Receive Date: 20121213
  Receipt Date: 20121213
  Transmission Date: 20130627
  Serious: Yes (Other)
  Sender: FDA-Public Use
  Company Number: US-ROCHE-1168097

PATIENT
  Age: 73 Year
  Sex: Female

DRUGS (3)
  1. BEVACIZUMAB [Suspect]
     Indication: PRODUCT USED FOR UNKNOWN INDICATION
     Route: 050
  2. CAPECITABINE [Concomitant]
     Indication: COLON CANCER
     Route: 065
  3. OXALIPLATIN [Concomitant]
     Indication: COLON CANCER
     Route: 065

REACTIONS (1)
  - Retinal vein occlusion [Unknown]
